FAERS Safety Report 11641593 (Version 3)
Quarter: 2016Q3

REPORT INFORMATION
  Report Type: Report from Study
  Country: PT (occurrence: PT)
  Receive Date: 20151019
  Receipt Date: 20160810
  Transmission Date: 20161109
  Serious: Yes (Death, Hospitalization, Other)
  Sender: FDA-Public Use
  Company Number: PT-GILEAD-2015-0177667

PATIENT
  Age: 72 Year
  Sex: Female
  Weight: 57 kg

DRUGS (9)
  1. IDELALISIB [Suspect]
     Active Substance: IDELALISIB
     Indication: CHRONIC LYMPHOCYTIC LEUKAEMIA
     Dosage: 150 MG, BID
     Route: 048
     Dates: start: 20150922
  2. FOLIC ACID. [Concomitant]
     Active Substance: FOLIC ACID
     Route: 065
  3. SPIRIVA [Concomitant]
     Active Substance: TIOTROPIUM BROMIDE MONOHYDRATE
     Route: 065
  4. LEXOTAN [Concomitant]
     Active Substance: BROMAZEPAM
     Route: 065
  5. SYMBICORT [Concomitant]
     Active Substance: BUDESONIDE\FORMOTEROL FUMARATE DIHYDRATE
  6. RITUXIMAB [Concomitant]
     Active Substance: RITUXIMAB
     Indication: CHRONIC LYMPHOCYTIC LEUKAEMIA
     Dosage: UNK
     Route: 065
     Dates: start: 20150907
  7. ALLOPURINOL                        /00003302/ [Concomitant]
     Active Substance: ALLOPURINOL
     Route: 065
  8. SINVASTATINA [Concomitant]
     Active Substance: SIMVASTATIN
     Route: 065
  9. ADALAT CC [Concomitant]
     Active Substance: NIFEDIPINE
     Route: 065

REACTIONS (7)
  - Altered state of consciousness [Unknown]
  - Pyrexia [Recovered/Resolved]
  - Ruptured cerebral aneurysm [Fatal]
  - Cerebral haemorrhage [Fatal]
  - Transaminases increased [Unknown]
  - Cardio-respiratory arrest [Fatal]
  - Leukocytosis [Unknown]

NARRATIVE: CASE EVENT DATE: 201510
